FAERS Safety Report 7041777-9 (Version None)
Quarter: 2010Q4

REPORT INFORMATION
  Report Type: 
  Country: None (occurrence: None)
  Receive Date: 20101013
  Receipt Date: 20091120
  Transmission Date: 20110411
  Serious: No
  Sender: FDA-Public Use
  Company Number: US-ASTRAZENECA-2009SE27858

PATIENT
  Age: 54 Year
  Sex: Female
  Weight: 59 kg

DRUGS (5)
  1. SYMBICORT [Suspect]
     Indication: ASTHMA
     Dosage: 640 MCG
     Route: 055
     Dates: start: 20090401
  2. SYMBICORT [Suspect]
     Dosage: 320 MCG
     Route: 055
  3. SINGULAIR [Concomitant]
  4. NASONEX [Concomitant]
  5. VITAMINS [Concomitant]

REACTIONS (1)
  - TENDONITIS [None]
